FAERS Safety Report 9011190 (Version 1)
Quarter: 2013Q1

REPORT INFORMATION
  Report Type: Spontaneous
  Country: US (occurrence: US)
  Receive Date: 20130109
  Receipt Date: 20130109
  Transmission Date: 20140127
  Serious: Yes (Life-Threatening, Other)
  Sender: FDA-Public Use
  Company Number: US-009507513-1301USA002007

PATIENT
  Age: 22 Year
  Sex: Female

DRUGS (3)
  1. SINGULAIR [Suspect]
     Indication: ASTHMA
     Dosage: 1 UNIT QD
     Route: 048
  2. BECLOMETHASONE DIPROPIONATE [Suspect]
     Dosage: 4 UNIT QD INHALATION
     Route: 055
  3. VENTOLIN (ALBUTEROL) [Suspect]
     Dosage: INHALATION
     Route: 055

REACTIONS (15)
  - Transferrin saturation decreased [Unknown]
  - Allergic granulomatous angiitis [Unknown]
  - Pulmonary embolism [Unknown]
  - Supraventricular tachycardia [Unknown]
  - Respiratory distress [Unknown]
  - Pyrexia [Unknown]
  - Proteinuria [Unknown]
  - Interstitial lung disease [Unknown]
  - Haemoptysis [Unknown]
  - Eosinophilia [Unknown]
  - Electrocardiogram T wave amplitude decreased [Unknown]
  - Electrocardiogram ST segment elevation [Unknown]
  - Ejection fraction decreased [Unknown]
  - Dilatation ventricular [Unknown]
  - Cough [Unknown]
